FAERS Safety Report 17285611 (Version 2)
Quarter: 2020Q2

REPORT INFORMATION
  Report Type: Report from Study
  Country: None (occurrence: US)
  Receive Date: 20200117
  Receipt Date: 20200525
  Transmission Date: 20200713
  Serious: Yes (Other)
  Sender: FDA-Public Use
  Company Number: US-ABBVIE-20K-163-3233461-00

PATIENT
  Age: 74 Year
  Sex: Female
  Weight: 53.12 kg

DRUGS (1)
  1. CREON [Suspect]
     Active Substance: PANCRELIPASE AMYLASE\PANCRELIPASE LIPASE\PANCRELIPASE PROTEASE
     Indication: PRODUCT USED FOR UNKNOWN INDICATION
     Dosage: SIX CAPSULES PER MEAL?1 CAPSULE EVERY MORNING AND AFTERNOON THEN?2 CAPSULES AT NIGHT
     Route: 048
     Dates: start: 2017

REACTIONS (2)
  - Fall [Recovered/Resolved]
  - Upper limb fracture [Recovering/Resolving]

NARRATIVE: CASE EVENT DATE: 20191213
